FAERS Safety Report 9008122 (Version 1)
Quarter: 2012Q4

REPORT INFORMATION
  Report Type: Spontaneous
  Country: RO (occurrence: None)
  Receive Date: 20121227
  Receipt Date: 20121227
  Transmission Date: 20130627
  Serious: Yes (Hospitalization)
  Sender: FDA-Public Use
  Company Number: FK201204018

PATIENT
  Age: 59 Year
  Sex: Female
  Weight: 93 kg

DRUGS (8)
  1. PROPOFOL [Suspect]
     Indication: ANAESTHESIA
     Route: 042
     Dates: start: 20121120, end: 20121120
  2. PROPOFOL [Suspect]
     Indication: SEDATION
     Route: 042
     Dates: start: 20121120, end: 20121120
  3. ROCURONIUM [Suspect]
  4. DORMICUM [Suspect]
     Dates: start: 20121120, end: 20121120
  5. FENTANYL [Suspect]
     Dates: start: 20121120, end: 20121120
  6. SUCCINYLCHOLINE CHLORIDE [Suspect]
     Dates: start: 20121120, end: 20121120
  7. CEFPIROME SULFATE [Suspect]
     Dosage: 1 in 12 hr
     Dates: start: 20121120, end: 20121120
  8. OMEPRAZOLE [Suspect]
     Dates: start: 20121120, end: 20121120

REACTIONS (12)
  - Chills [None]
  - Hypotension [None]
  - Tachycardia [None]
  - Dyspnoea [None]
  - Vomiting [None]
  - Psychomotor hyperactivity [None]
  - Pyrexia [None]
  - Haemodynamic instability [None]
  - Asthma [None]
  - Hepatic encephalopathy [None]
  - Leukocytosis [None]
  - Hepatocellular injury [None]
